FAERS Safety Report 4291999-5 (Version None)
Quarter: 2004Q1

REPORT INFORMATION
  Report Type: 
  Country: None (occurrence: None)
  Receive Date: 20040210
  Receipt Date: 20040210
  Transmission Date: 20041129
  Serious: Yes (Hospitalization)
  Sender: FDA-Public Use
  Company Number: None

PATIENT
  Age: 19 Year
  Sex: Male
  Weight: 70 kg

DRUGS (2)
  1. REMICADE [Suspect]
     Indication: CROHN'S DISEASE
     Dosage: 75 MG QD ORAL
     Route: 048
     Dates: start: 20020301, end: 20030129
  2. AZATHIOPRINE [Suspect]
     Indication: CROHN'S DISEASE
     Dosage: 5MG/KG Q 8 WEEKS PARENTERAL
     Route: 051
     Dates: start: 20020301, end: 20031201

REACTIONS (2)
  - LEUKOPENIA [None]
  - PNEUMOCYSTIS CARINII PNEUMONIA [None]
